FAERS Safety Report 20998676 (Version 1)
Quarter: 2022Q2

REPORT INFORMATION
  Report Type: Spontaneous
  Country: JP (occurrence: JP)
  Receive Date: 20220623
  Receipt Date: 20220623
  Transmission Date: 20220721
  Serious: Yes (Other)
  Sender: FDA-Public Use
  Company Number: JP-UCBJ-CD202205814UCBPHAPROD

PATIENT
  Age: 8 Decade
  Sex: Male
  Weight: 68 kg

DRUGS (6)
  1. LEVETIRACETAM [Suspect]
     Active Substance: LEVETIRACETAM
     Indication: Partial seizures with secondary generalisation
     Dosage: 500 MILLIGRAM, 2X/DAY (BID)
     Route: 048
  2. EDOXABAN TOSYLATE [Concomitant]
     Active Substance: EDOXABAN TOSYLATE
     Indication: Product used for unknown indication
     Route: 048
  3. AZILSARTAN KAMEDOXOMIL [Concomitant]
     Active Substance: AZILSARTAN KAMEDOXOMIL
     Indication: Product used for unknown indication
     Route: 048
  4. FYCOMPA [Concomitant]
     Active Substance: PERAMPANEL
     Indication: Focal dyscognitive seizures
     Route: 065
  5. FYCOMPA [Concomitant]
     Active Substance: PERAMPANEL
     Route: 065
  6. LEVETIRACETAM [Concomitant]
     Active Substance: LEVETIRACETAM
     Indication: Product used for unknown indication
     Dosage: GENERIC LEVETIRACETAM

REACTIONS (6)
  - Focal dyscognitive seizures [Recovered/Resolved]
  - Anger [Recovering/Resolving]
  - Depression [Unknown]
  - Cognitive disorder [Unknown]
  - Dysphagia [Unknown]
  - Decreased activity [Unknown]
